FAERS Safety Report 5698112-8 (Version None)
Quarter: 2008Q2

REPORT INFORMATION
  Report Type: 
  Country: None (occurrence: None)
  Receive Date: 20080403
  Receipt Date: 20080321
  Transmission Date: 20081010
  Serious: Yes (Life-Threatening, Hospitalization)
  Sender: FDA-Public Use
  Company Number: 000339

PATIENT
  Age: 55 Year
  Sex: Female

DRUGS (1)
  1. BUSULFEX [Suspect]
     Indication: STEM CELL TRANSPLANT
     Dosage: 30 ML,  INTRAVENOUS
     Route: 042
     Dates: start: 20070731, end: 20070803

REACTIONS (4)
  - ACUTE GRAFT VERSUS HOST DISEASE [None]
  - BONE MARROW TRANSPLANT [None]
  - GASTROINTESTINAL HAEMORRHAGE [None]
  - SEPSIS [None]
